FAERS Safety Report 14145373 (Version 3)
Quarter: 2017Q4

REPORT INFORMATION
  Report Type: Spontaneous
  Country: US (occurrence: US)
  Receive Date: 20171031
  Receipt Date: 20171114
  Transmission Date: 20180321
  Serious: No
  Sender: FDA-Public Use
  Company Number: PHEH2017US035108

PATIENT
  Sex: Female

DRUGS (1)
  1. AFINITOR [Suspect]
     Active Substance: EVEROLIMUS
     Indication: BREAST CANCER FEMALE
     Dosage: 7.5 MG, QD
     Route: 048
     Dates: start: 20170914

REACTIONS (5)
  - Eye swelling [Not Recovered/Not Resolved]
  - Oral pain [Unknown]
  - Swelling face [Not Recovered/Not Resolved]
  - Nasal oedema [Unknown]
  - Stomatitis [Unknown]
